FAERS Safety Report 21775175 (Version 3)
Quarter: 2023Q1

REPORT INFORMATION
  Report Type: Spontaneous
  Country: PK (occurrence: PK)
  Receive Date: 20221225
  Receipt Date: 20230102
  Transmission Date: 20230418
  Serious: Yes (Other)
  Sender: FDA-Public Use
  Company Number: PK-PFIZER INC-2021011468

PATIENT
  Age: 54 Year
  Sex: Male

DRUGS (7)
  1. ENBREL [Suspect]
     Active Substance: ETANERCEPT
     Indication: Ankylosing spondylitis
     Dosage: 50 MG, WEEKLY
     Route: 058
  2. ENBREL [Suspect]
     Active Substance: ETANERCEPT
     Dosage: 50 MG, WEEKLY
     Route: 058
     Dates: start: 20210421
  3. XOBIX [Concomitant]
     Dosage: 7.5 MG, 2X/DAY
  4. TRAMAPAR [Concomitant]
     Dosage: UNK, 2X/DAY
  5. CAL-D-OR [Concomitant]
     Dosage: UNK, 2X/DAY
  6. Zeegap [Concomitant]
     Dosage: 25 MG, 1X/DAY
  7. Seacal [Concomitant]
     Dosage: TAKING REGULARLY

REACTIONS (2)
  - Diabetes mellitus [Unknown]
  - Dyslipidaemia [Unknown]
